FAERS Safety Report 4360313-9 (Version None)
Quarter: 2004Q2

REPORT INFORMATION
  Report Type: 
  Country: None (occurrence: None)
  Receive Date: 20040514
  Receipt Date: 20040506
  Transmission Date: 20050107
  Serious: Yes (Other)
  Sender: FDA-Public Use
  Company Number: US-JNJFOC-20040501479

PATIENT
  Age: 35 Year
  Sex: Female

DRUGS (1)
  1. DURAGESIC [Suspect]
     Dosage: 25 UG/HR, 1 IN 72 HOUR, TRANSDERMAL
     Route: 062

REACTIONS (2)
  - CONVULSION [None]
  - OEDEMA PERIPHERAL [None]
